FAERS Safety Report 6702416-7 (Version None)
Quarter: 2010Q2

REPORT INFORMATION
  Report Type: 
  Country: None (occurrence: None)
  Receive Date: 20100429
  Receipt Date: 20100423
  Transmission Date: 20101027
  Serious: Yes (Death, Hospitalization, Other)
  Sender: FDA-Public Use
  Company Number: A0846387A

PATIENT
  Age: 78 Year
  Sex: Male

DRUGS (11)
  1. PROMACTA [Suspect]
     Dosage: 50MG PER DAY
     Dates: start: 20100101, end: 20100113
  2. PROSCAR [Concomitant]
  3. HYDROCODONE BITARTRATE [Concomitant]
  4. ASPIRIN [Concomitant]
  5. AVODART [Concomitant]
  6. VITAMIN B-12 [Concomitant]
  7. ETHINYL ESTRADIOL [Concomitant]
  8. LOVENOX [Concomitant]
  9. NEXIUM [Concomitant]
  10. PREDNISONE [Concomitant]
  11. REVLIMID [Concomitant]

REACTIONS (4)
  - CARDIO-RESPIRATORY ARREST [None]
  - CEREBROVASCULAR ACCIDENT [None]
  - THROMBOSIS [None]
  - TRANSIENT ISCHAEMIC ATTACK [None]
